FAERS Safety Report 25575431 (Version 1)
Quarter: 2025Q3

REPORT INFORMATION
  Report Type: Spontaneous
  Country: US (occurrence: US)
  Receive Date: 20250718
  Receipt Date: 20250718
  Transmission Date: 20251020
  Serious: Yes (Other)
  Sender: GLAXOSMITHKLINE
  Company Number: US-GSK-US2025086112

PATIENT
  Sex: Male

DRUGS (3)
  1. OJJAARA [Suspect]
     Active Substance: MOMELOTINIB DIHYDROCHLORIDE MONOHYDRATE
     Indication: Myelofibrosis
     Dosage: 200 MG, QD
  2. ACETERIN [Concomitant]
     Indication: Product used for unknown indication
  3. ACETERIN [Concomitant]

REACTIONS (4)
  - Hyperkalaemia [Not Recovered/Not Resolved]
  - Malignant neoplasm progression [Unknown]
  - Blood lactate dehydrogenase increased [Not Recovered/Not Resolved]
  - Leukocytosis [Not Recovered/Not Resolved]

NARRATIVE: CASE EVENT DATE: 20250708
